FAERS Safety Report 24677523 (Version 1)
Quarter: 2024Q4

REPORT INFORMATION
  Report Type: Spontaneous
  Country: DE (occurrence: DE)
  Receive Date: 20241129
  Receipt Date: 20241129
  Transmission Date: 20250115
  Serious: Yes (Other)
  Sender: ALEXION PHARMACEUTICALS
  Company Number: DE-AstraZeneca-CH-00755764A

PATIENT

DRUGS (12)
  1. DURVALUMAB [Suspect]
     Active Substance: DURVALUMAB
     Indication: Prophylaxis
  2. DURVALUMAB [Suspect]
     Active Substance: DURVALUMAB
  3. DURVALUMAB [Suspect]
     Active Substance: DURVALUMAB
  4. DURVALUMAB [Suspect]
     Active Substance: DURVALUMAB
  5. CISPLATIN [Suspect]
     Active Substance: CISPLATIN
     Indication: Prophylaxis
  6. CISPLATIN [Suspect]
     Active Substance: CISPLATIN
  7. CISPLATIN [Suspect]
     Active Substance: CISPLATIN
  8. CISPLATIN [Suspect]
     Active Substance: CISPLATIN
  9. GEMCITABINE [Concomitant]
     Active Substance: GEMCITABINE
     Indication: Prophylaxis
  10. GEMCITABINE [Concomitant]
     Active Substance: GEMCITABINE
  11. GEMCITABINE [Concomitant]
     Active Substance: GEMCITABINE
  12. GEMCITABINE [Concomitant]
     Active Substance: GEMCITABINE

REACTIONS (3)
  - Polyneuropathy [Recovered/Resolved]
  - Quality of life decreased [Recovered/Resolved]
  - Dizziness [Recovered/Resolved]
